FAERS Safety Report 8894180 (Version 3)
Quarter: 2013Q2

REPORT INFORMATION
  Report Type: Spontaneous
  Country: FR (occurrence: FR)
  Receive Date: 20121108
  Receipt Date: 20130429
  Transmission Date: 20140414
  Serious: Yes (Hospitalization)
  Sender: FDA-Public Use
  Company Number: FR-PFIZER INC-2012266119

PATIENT
  Age: 57 Year
  Sex: Female

DRUGS (33)
  1. TRIFLUCAN [Suspect]
     Indication: PROPHYLAXIS
     Dosage: UNK
     Route: 042
     Dates: start: 20120725, end: 20120806
  2. VANCOMYCIN HCL [Suspect]
     Indication: PSEUDOMONAS INFECTION
     Dosage: UNK
     Route: 042
     Dates: start: 20120803, end: 20120805
  3. OXYNORM [Suspect]
     Indication: PAIN
     Dosage: UNK
     Route: 048
     Dates: start: 20120731, end: 20120805
  4. ZOVIRAX [Suspect]
     Indication: PROPHYLAXIS
     Dosage: UNK
     Dates: start: 20120731, end: 20120807
  5. PLITICAN [Suspect]
     Indication: NAUSEA
     Dosage: UNK
     Route: 042
     Dates: start: 20120727, end: 20120808
  6. FORTUM [Suspect]
     Indication: PSEUDOMONAS INFECTION
     Dosage: UNK
     Route: 042
     Dates: start: 20120802, end: 20120809
  7. TEMERIT [Concomitant]
     Dosage: UNK
  8. VERSATIS [Concomitant]
  9. LIPANTHYL [Concomitant]
  10. CO-OLMETEC [Concomitant]
     Dosage: UNK
  11. ZELITREX [Concomitant]
     Dosage: UNK
     Dates: start: 20120722, end: 20120724
  12. ZELITREX [Concomitant]
     Dosage: UNK
     Dates: start: 20120727, end: 20120730
  13. ZOPHREN [Concomitant]
     Dosage: UNK
     Dates: start: 20120722, end: 20120725
  14. MYOLASTAN [Concomitant]
     Dosage: UNK
     Dates: start: 20120725, end: 20120728
  15. MYOLASTAN [Concomitant]
     Dosage: UNK
     Dates: start: 20120808, end: 20120809
  16. TRANSIPEG [Concomitant]
     Dosage: UNK
     Dates: start: 20120726, end: 20120730
  17. DECAN [Concomitant]
     Dosage: UNK
     Dates: start: 20120726, end: 20120730
  18. CERNEVIT [Concomitant]
     Dosage: UNK
     Dates: start: 20120726, end: 20120730
  19. OLICLINOMEL [Concomitant]
     Dosage: UNK
     Dates: start: 20120726, end: 20120729
  20. PERFALGAN [Concomitant]
     Dosage: UNK
     Dates: start: 20120803, end: 20120807
  21. AMIKLIN [Concomitant]
     Dosage: UNK
     Dates: start: 20120731, end: 20120803
  22. FLAGYL [Concomitant]
     Dosage: UNK
     Dates: start: 20120802, end: 20120807
  23. ACUPAN [Concomitant]
     Dosage: UNK
     Dates: start: 20120802, end: 20120807
  24. SPASFON [Concomitant]
     Dosage: UNK
     Dates: start: 20120803, end: 20120810
  25. SMECTA [Concomitant]
     Dosage: UNK
     Dates: start: 20120804, end: 20120810
  26. TIORFAN [Concomitant]
     Dosage: UNK
     Dates: start: 20120804, end: 20120810
  27. MOPRAL [Concomitant]
     Dosage: UNK
  28. ALTEISDUO [Concomitant]
     Dosage: UNK
  29. DEXAMETHASONE [Concomitant]
  30. ALKERAN [Concomitant]
     Dosage: UNK
     Dates: start: 20120723, end: 20120724
  31. NEULASTA [Concomitant]
     Dosage: UNK
     Dates: start: 20120727
  32. VELCADE [Concomitant]
  33. THALIDOMIDE [Concomitant]

REACTIONS (15)
  - Rash maculo-papular [Recovered/Resolved]
  - Cholestasis [Recovered/Resolved]
  - Vomiting [Recovering/Resolving]
  - Malaise [Recovering/Resolving]
  - Paraesthesia [Recovering/Resolving]
  - Pruritus [Recovering/Resolving]
  - Chills [Recovering/Resolving]
  - Pyrexia [Recovering/Resolving]
  - Oxygen saturation decreased [Recovering/Resolving]
  - Hypercapnia [Recovering/Resolving]
  - Hyperventilation [Recovering/Resolving]
  - Flushing [Recovering/Resolving]
  - Blood pressure increased [Unknown]
  - Diarrhoea [Unknown]
  - Bronchospasm [Recovering/Resolving]
